FAERS Safety Report 8175346-4 (Version None)
Quarter: 2012Q1

REPORT INFORMATION
  Report Type: 
  Country: None (occurrence: None)
  Receive Date: 20120229
  Receipt Date: 20120224
  Transmission Date: 20120608
  Serious: Yes (Other)
  Sender: FDA-Public Use
  Company Number: US-PFIZER INC-2012029704

PATIENT
  Sex: Male

DRUGS (2)
  1. LYRICA [Suspect]
     Indication: NEURALGIA
     Dosage: UNK
     Dates: start: 20111227, end: 20120101
  2. LYRICA [Suspect]
     Dosage: 75 MG, 2X/DAY
     Route: 048
     Dates: start: 20120101

REACTIONS (6)
  - DRUG EFFECT DECREASED [None]
  - HEAD DISCOMFORT [None]
  - NERVE INJURY [None]
  - MUSCULOSKELETAL PAIN [None]
  - ABNORMAL SENSATION IN EYE [None]
  - FEELING ABNORMAL [None]
